FAERS Safety Report 23322369 (Version 2)
Quarter: 2023Q4

REPORT INFORMATION
  Report Type: Spontaneous
  Country: JP (occurrence: None)
  Receive Date: 20231220
  Receipt Date: 20231229
  Transmission Date: 20240109
  Serious: Yes (Hospitalization)
  Sender: FDA-Public Use
  Company Number: 2023A285391

PATIENT
  Age: 68 Year
  Sex: Male

DRUGS (3)
  1. DAPAGLIFLOZIN [Suspect]
     Active Substance: DAPAGLIFLOZIN
     Indication: Type 2 diabetes mellitus
     Dosage: DOSE UNKNOWN
     Route: 048
  2. INSULIN NOS [Concomitant]
     Active Substance: INSULIN NOS
     Indication: Type 2 diabetes mellitus
     Dosage: DOSE UNKNOWN
  3. INSULIN ASPART(GENETICAL RECOMBINATION) [Concomitant]
     Indication: Type 2 diabetes mellitus
     Dosage: DOSE UNKNOWN
     Route: 065

REACTIONS (1)
  - Cardiac failure [Recovering/Resolving]
